FAERS Safety Report 11768957 (Version 2)
Quarter: 2017Q1

REPORT INFORMATION
  Report Type: Spontaneous
  Country: US (occurrence: US)
  Receive Date: 20151123
  Receipt Date: 20170303
  Transmission Date: 20170428
  Serious: Yes (Death, Other)
  Sender: FDA-Public Use
  Company Number: US-ELI_LILLY_AND_COMPANY-US201511004762

PATIENT
  Age: 53 Year
  Sex: Male
  Weight: 114.29 kg

DRUGS (12)
  1. ANDROGEL [Suspect]
     Active Substance: TESTOSTERONE
     Indication: HORMONE REPLACEMENT THERAPY
     Dosage: 3 DF, QD
     Route: 062
     Dates: start: 20140113
  2. LIPITOR [Concomitant]
     Active Substance: ATORVASTATIN CALCIUM
     Dosage: 20 MG, EACH MORNING
     Route: 048
     Dates: start: 20140113
  3. LANTUS [Concomitant]
     Active Substance: INSULIN GLARGINE
     Dosage: 75 IU, QD
     Route: 058
     Dates: start: 20140714
  4. AXIRON [Suspect]
     Active Substance: TESTOSTERONE
     Indication: HORMONE REPLACEMENT THERAPY
     Dosage: 60 MG, QD
     Route: 062
  5. GLUCOPHAGE [Concomitant]
     Active Substance: METFORMIN HYDROCHLORIDE
     Dosage: 1000 MG, BID
     Route: 048
     Dates: start: 20131016
  6. METFORMIN HCL [Concomitant]
     Active Substance: METFORMIN HYDROCHLORIDE
     Dosage: 1500 MG, EACH EVENING
     Route: 048
     Dates: start: 20131118
  7. LIVALO [Concomitant]
     Active Substance: PITAVASTATIN CALCIUM
     Dosage: 2 MG, QD
     Route: 048
     Dates: start: 20140310
  8. TESTOSTERONE CYPIONATE. [Suspect]
     Active Substance: TESTOSTERONE CYPIONATE
     Indication: HORMONE REPLACEMENT THERAPY
     Dosage: 1 ML, MONTHLY (1/M)
     Route: 030
     Dates: start: 20131002
  9. LISINOPRIL. [Concomitant]
     Active Substance: LISINOPRIL
     Dosage: 2.5 MG, QD
     Route: 048
     Dates: start: 20140714
  10. METFORMIN HCL [Concomitant]
     Active Substance: METFORMIN HYDROCHLORIDE
     Dosage: 1000 MG, EACH MORNING
     Route: 048
     Dates: start: 20131118
  11. VIAGRA [Concomitant]
     Active Substance: SILDENAFIL CITRATE
     Dosage: 100 MG, PRN
     Route: 048
     Dates: start: 20140113
  12. HUMALOG [Concomitant]
     Active Substance: INSULIN LISPRO
     Dosage: 20 IU, TID
     Route: 058
     Dates: start: 20140922

REACTIONS (3)
  - Myocardial infarction [Fatal]
  - Cerebrovascular accident [Fatal]
  - Chest pain [Fatal]

NARRATIVE: CASE EVENT DATE: 20150119
